FAERS Safety Report 22224350 (Version 2)
Quarter: 2023Q2

REPORT INFORMATION
  Report Type: Spontaneous
  Country: US (occurrence: US)
  Receive Date: 20230418
  Receipt Date: 20230629
  Transmission Date: 20230722
  Serious: Yes (Other)
  Sender: FDA-Public Use
  Company Number: US-PFIZER INC-PV202300038503

PATIENT
  Age: 70 Year
  Sex: Female
  Weight: 151.95 kg

DRUGS (6)
  1. BOSULIF [Interacting]
     Active Substance: BOSUTINIB MONOHYDRATE
     Indication: Chronic leukaemia
     Dosage: 300 MG, DAILY, [THREE TABLETS DAILY TO EQUAL 300MG ORALLY]
     Route: 048
     Dates: start: 201802, end: 2020
  2. BOSULIF [Interacting]
     Active Substance: BOSUTINIB MONOHYDRATE
     Dosage: 100 MG
     Dates: start: 2022
  3. BOSULIF [Interacting]
     Active Substance: BOSUTINIB MONOHYDRATE
     Dosage: 100 MG
     Dates: start: 202211
  4. BOSULIF [Interacting]
     Active Substance: BOSUTINIB MONOHYDRATE
     Dosage: 300 MG, DAILY (3 TABLET ORALLY EVERY DAY. SWALLOW WHOLE; DO NOT BREAK TAB. TAKE WITH FOOD)
     Route: 048
  5. BOSULIF [Interacting]
     Active Substance: BOSUTINIB MONOHYDRATE
     Dosage: 100 MG
     Dates: start: 20230125
  6. CYMBALTA [Interacting]
     Active Substance: DULOXETINE HYDROCHLORIDE
     Indication: Pain in extremity
     Dosage: 20 MG, 1X/DAY, [20MG ONE TIME A DAY BY MOUTH]
     Route: 048
     Dates: start: 202211, end: 202212

REACTIONS (5)
  - Fluid retention [Not Recovered/Not Resolved]
  - Gait disturbance [Not Recovered/Not Resolved]
  - Joint injury [Not Recovered/Not Resolved]
  - Neoplasm recurrence [Unknown]
  - Drug interaction [Recovered/Resolved]

NARRATIVE: CASE EVENT DATE: 20220101
